FAERS Safety Report 12213648 (Version 2)
Quarter: 2016Q2

REPORT INFORMATION
  Report Type: Spontaneous
  Country: US (occurrence: US)
  Receive Date: 20160328
  Receipt Date: 20160518
  Transmission Date: 20160815
  Serious: No
  Sender: FDA-Public Use
  Company Number: US-PFIZER INC-2016165477

PATIENT
  Age: 71 Year
  Sex: Female
  Weight: 73.48 kg

DRUGS (5)
  1. VICODIN/IBUPROFEN [Concomitant]
     Indication: PAIN
     Dosage: HYDROCODONE BITARTRATE 7.5MG/ IBUPROFEN 200MG AS NEEDED
     Route: 048
  2. COZAAR [Concomitant]
     Active Substance: LOSARTAN POTASSIUM
     Indication: HYPERTENSION
     Dosage: 50MG TABLET EVERY NIGHT
     Route: 048
  3. RABIUM [Concomitant]
     Indication: GASTROOESOPHAGEAL REFLUX DISEASE
     Dosage: 20MG TABLET EVERY MORNING
     Route: 048
  4. ADVIL [Suspect]
     Active Substance: IBUPROFEN
     Dosage: UNK
  5. GABAPENTIN. [Suspect]
     Active Substance: GABAPENTIN
     Indication: POST HERPETIC NEURALGIA
     Dosage: 300 MG, 3X/DAY
     Route: 048
     Dates: start: 20160316

REACTIONS (4)
  - Neuralgia [Not Recovered/Not Resolved]
  - Hypokinesia [Unknown]
  - Drug ineffective [Unknown]
  - Condition aggravated [Unknown]

NARRATIVE: CASE EVENT DATE: 20160316
